FAERS Safety Report 9529477 (Version 1)
Quarter: 2013Q1

REPORT INFORMATION
  Report Type: Spontaneous
  Country: US (occurrence: None)
  Receive Date: 20130318
  Receipt Date: 20130318
  Transmission Date: 20140127
  Serious: Yes (Other)
  Sender: FDA-Public Use
  Company Number: 2012SP012785

PATIENT
  Age: 57 Year
  Sex: Male
  Weight: 86.2 kg

DRUGS (3)
  1. SYLATRON [Suspect]
     Indication: MALIGNANT MELANOMA
     Route: 058
     Dates: start: 20120306
  2. PERCOCET (ACETAMINOPHEN, OXYCODONE HYDROCHLORIDE) [Concomitant]
  3. SENSIPAR (CINACALCET HYDROCHLORIDE) [Concomitant]

REACTIONS (16)
  - Pancytopenia [None]
  - Tremor [None]
  - Feeling abnormal [None]
  - Drug intolerance [None]
  - Insomnia [None]
  - Decreased appetite [None]
  - Nausea [None]
  - Dyspnoea [None]
  - Anxiety [None]
  - Dry mouth [None]
  - Fatigue [None]
  - Pyrexia [None]
  - Depression [None]
  - Malaise [None]
  - Chills [None]
  - Off label use [None]
